FAERS Safety Report 7952082-8 (Version None)
Quarter: 2011Q4

REPORT INFORMATION
  Report Type: 
  Country: None (occurrence: None)
  Receive Date: 20111201
  Receipt Date: 20111122
  Transmission Date: 20120403
  Serious: Yes (Other)
  Sender: FDA-Public Use
  Company Number: US-ASTRAZENECA-2011SE70445

PATIENT
  Age: 48 Year
  Sex: Female

DRUGS (1)
  1. NEXIUM [Suspect]
     Route: 048

REACTIONS (5)
  - MYOCARDIAL INFARCTION [None]
  - DYSPEPSIA [None]
  - ARTHRITIS [None]
  - DIABETES MELLITUS [None]
  - CARDIAC FAILURE CONGESTIVE [None]
